FAERS Safety Report 20325110 (Version 2)
Quarter: 2022Q1

REPORT INFORMATION
  Report Type: Report from Study
  Country: FR (occurrence: FR)
  Receive Date: 20220111
  Receipt Date: 20220119
  Transmission Date: 20220423
  Serious: No
  Sender: FDA-Public Use
  Company Number: FR-SUN PHARMACEUTICAL INDUSTRIES LTD-2021R1-323341

PATIENT
  Age: 17 Year
  Sex: Female

DRUGS (3)
  1. METHOTREXATE [Suspect]
     Active Substance: METHOTREXATE
     Indication: Osteosarcoma
     Dosage: UNK (34.7 G/M2)
     Route: 065
     Dates: start: 201301, end: 201307
  2. IFOSFAMIDE [Suspect]
     Active Substance: IFOSFAMIDE
     Indication: Osteosarcoma
     Dosage: UNK (81.3 G/M2)
     Route: 065
     Dates: start: 201301, end: 201307
  3. ETOPOSIDE [Suspect]
     Active Substance: ETOPOSIDE
     Indication: Osteosarcoma
     Dosage: UNK (2 G/M2)
     Route: 065
     Dates: start: 201301, end: 201307

REACTIONS (1)
  - Dyspepsia [Not Recovered/Not Resolved]
